FAERS Safety Report 9701920 (Version 1)
Quarter: 2013Q4

REPORT INFORMATION
  Report Type: Spontaneous
  Country: US (occurrence: US)
  Receive Date: 20131121
  Receipt Date: 20131121
  Transmission Date: 20140711
  Serious: No
  Sender: FDA-Public Use
  Company Number: US-B.I. PHARMACEUTICALS,INC./RIDGEFIELD-2013-BI-37003BP

PATIENT
  Age: 66 Year
  Sex: Female
  Weight: 88 kg

DRUGS (12)
  1. COMBIVENT [Suspect]
     Indication: ASTHMA
     Dosage: STRENGTH: 20 MCG / 100 MCG; DAILY DOSE: 60 MCG/300MCG
     Route: 055
     Dates: start: 201309
  2. OXYCODONE [Concomitant]
     Indication: PAIN
     Dosage: 20 MG
     Route: 048
  3. COUMADIN [Concomitant]
     Indication: THROMBOSIS PROPHYLAXIS
     Route: 048
  4. COUMADIN [Concomitant]
     Route: 048
  5. NORVASC [Concomitant]
     Indication: HYPERTENSION
     Dosage: 2.5 MG
     Route: 048
  6. PROPRANOLOL [Concomitant]
     Indication: HYPERTENSION
     Dosage: 40 MG
     Route: 048
  7. ALPRAZOLAM [Concomitant]
     Indication: SLEEP DISORDER
     Dosage: 0.5 MG
     Route: 048
  8. ALPRAZOLAM [Concomitant]
     Indication: ANXIETY
  9. NAVELBINE [Concomitant]
     Indication: NEOPLASM MALIGNANT
  10. SYMBICORT [Concomitant]
     Indication: ASTHMA
     Route: 055
  11. TAXOTERE [Concomitant]
     Indication: NEOPLASM MALIGNANT
  12. DECADRON [Concomitant]
     Indication: NEOPLASM MALIGNANT

REACTIONS (6)
  - Foreign body [Not Recovered/Not Resolved]
  - Cough [Recovered/Resolved]
  - Secretion discharge [Recovered/Resolved]
  - Dyspnoea [Not Recovered/Not Resolved]
  - Drug effect delayed [Not Recovered/Not Resolved]
  - Off label use [Not Recovered/Not Resolved]
